FAERS Safety Report 8327991-0 (Version None)
Quarter: 2012Q2

REPORT INFORMATION
  Report Type: 
  Country: None (occurrence: None)
  Receive Date: 20120430
  Receipt Date: 20120420
  Transmission Date: 20120825
  Serious: Yes (Hospitalization)
  Sender: FDA-Public Use
  Company Number: 2012GB0149

PATIENT
  Age: 4 Year
  Sex: Male

DRUGS (1)
  1. ORFADIN [Suspect]
     Indication: TYROSINAEMIA
     Dosage: 25 MG (25 MG, 1 IN 1 D)
     Dates: start: 20010927

REACTIONS (2)
  - CHOLELITHIASIS [None]
  - TREATMENT NONCOMPLIANCE [None]
